FAERS Safety Report 6553493-8 (Version None)
Quarter: 2010Q1

REPORT INFORMATION
  Report Type: 
  Country: None (occurrence: None)
  Receive Date: 20100122
  Receipt Date: 20100106
  Transmission Date: 20100710
  Serious: Yes (Death)
  Sender: FDA-Public Use
  Company Number: 2009AC000005

PATIENT
  Age: 87 Year
  Sex: Female

DRUGS (6)
  1. DIGOXIN [Suspect]
  2. AVANDIA [Concomitant]
  3. PRAVACHOL [Concomitant]
  4. GLYBURIDE [Concomitant]
  5. COREG [Concomitant]
  6. CILOSTAZOLE [Concomitant]

REACTIONS (2)
  - ECONOMIC PROBLEM [None]
  - MULTIPLE INJURIES [None]
